FAERS Safety Report 11100108 (Version 1)
Quarter: 2015Q2

REPORT INFORMATION
  Report Type: Spontaneous
  Country: ES (occurrence: ES)
  Receive Date: 20150508
  Receipt Date: 20150508
  Transmission Date: 20150821
  Serious: Yes (Other)
  Sender: FDA-Public Use
  Company Number: ES-OTSUKA PHARMACEUTICAL CO.-2015_000216

PATIENT
  Age: 76 Year
  Sex: Female

DRUGS (1)
  1. DACOGEN [Suspect]
     Active Substance: DECITABINE
     Indication: ACUTE MYELOID LEUKAEMIA
     Route: 042

REACTIONS (1)
  - Herpes zoster [Recovering/Resolving]
